FAERS Safety Report 6438448-6 (Version None)
Quarter: 2009Q4

REPORT INFORMATION
  Report Type: 
  Country: None (occurrence: None)
  Receive Date: 20091110
  Receipt Date: 20080514
  Transmission Date: 20100525
  Serious: Yes (Other)
  Sender: FDA-Public Use
  Company Number: WSDF_00729

PATIENT
  Sex: Female

DRUGS (1)
  1. WINRHO [Suspect]
     Indication: PROPHYLAXIS AGAINST RH ISOIMMUNISATION

REACTIONS (3)
  - ANGIOEDEMA [None]
  - DRUG EXPOSURE DURING PREGNANCY [None]
  - URTICARIA [None]
